FAERS Safety Report 5729858-0 (Version None)
Quarter: 2008Q2

REPORT INFORMATION
  Report Type: 
  Country: None (occurrence: None)
  Receive Date: 20080502
  Receipt Date: 20080423
  Transmission Date: 20081010
  Serious: Yes (Death, Hospitalization)
  Sender: FDA-Public Use
  Company Number: 2007US003132

PATIENT
  Age: 64 Year
  Sex: Male

DRUGS (12)
  1. PROGRAF [Suspect]
     Indication: LIVER TRANSPLANT
     Dosage: 2 MG, UID/QD, ORAL, 1.5 MG, UID/QD,ORAL, 1 MG, UID/QD, ORAL
     Route: 048
     Dates: start: 20061214, end: 20070104
  2. PROGRAF [Suspect]
     Indication: LIVER TRANSPLANT
     Dosage: 2 MG, UID/QD, ORAL, 1.5 MG, UID/QD,ORAL, 1 MG, UID/QD, ORAL
     Route: 048
     Dates: start: 20070104, end: 20070105
  3. PROGRAF [Suspect]
     Indication: LIVER TRANSPLANT
     Dosage: 2 MG, UID/QD, ORAL, 1.5 MG, UID/QD,ORAL, 1 MG, UID/QD, ORAL
     Route: 048
     Dates: start: 20070105, end: 20070107
  4. MYCOPHENOLATE MOFETIL [Suspect]
     Indication: LIVER TRANSPLANT
     Dosage: 1500 MG, BID, ORAL
     Route: 048
     Dates: start: 20061214
  5. ASPIRIN [Concomitant]
  6. METOPROLOL TARTRATE [Concomitant]
  7. FOLIC ACID [Concomitant]
  8. MAGNESIUM (MAGNESIUM) [Concomitant]
  9. CALCIUM CARBONATE [Concomitant]
  10. PROTONIX [Concomitant]
  11. MYCELEX [Concomitant]
  12. IRON (IRON) [Concomitant]

REACTIONS (45)
  - ASPERGILLOSIS [None]
  - ATELECTASIS [None]
  - ATRIAL FIBRILLATION [None]
  - BACTERIAL INFECTION [None]
  - BLOOD ALBUMIN DECREASED [None]
  - BLOOD CALCIUM DECREASED [None]
  - BLOOD CREATININE INCREASED [None]
  - BLOOD CULTURE POSITIVE [None]
  - BLOOD SODIUM DECREASED [None]
  - BLOOD UREA INCREASED [None]
  - CARDIAC FAILURE CONGESTIVE [None]
  - CARDIOMEGALY [None]
  - CIRCULATORY COLLAPSE [None]
  - DISEASE PROGRESSION [None]
  - DYSPNOEA [None]
  - ENTEROCOCCAL INFECTION [None]
  - ERYTHROPOIESIS ABNORMAL [None]
  - FLUID OVERLOAD [None]
  - FUSARIUM INFECTION [None]
  - GENERAL PHYSICAL HEALTH DETERIORATION [None]
  - HAEMATOCRIT DECREASED [None]
  - HAEMODIALYSIS [None]
  - HAEMOGLOBIN DECREASED [None]
  - HEPATITIS B POSITIVE [None]
  - HEPATITIS C [None]
  - HISTIOCYTOSIS HAEMATOPHAGIC [None]
  - ISCHAEMIA [None]
  - LUNG CONSOLIDATION [None]
  - LUNG INFILTRATION [None]
  - LYMPHOCYTE PERCENTAGE DECREASED [None]
  - MULTI-ORGAN FAILURE [None]
  - NEUTROPHIL PERCENTAGE INCREASED [None]
  - OPPORTUNISTIC INFECTION [None]
  - PLATELET COUNT DECREASED [None]
  - PLEURAL EFFUSION [None]
  - PULMONARY CONGESTION [None]
  - PULMONARY HYPERTENSION [None]
  - RED BLOOD CELL COUNT DECREASED [None]
  - RIGHT VENTRICULAR DYSFUNCTION [None]
  - RIGHT VENTRICULAR HYPERTROPHY [None]
  - SEPTIC SHOCK [None]
  - SPUTUM CULTURE POSITIVE [None]
  - STAPHYLOCOCCAL INFECTION [None]
  - TRICUSPID VALVE INCOMPETENCE [None]
  - WHITE BLOOD CELL COUNT DECREASED [None]
